FAERS Safety Report 9415101 (Version 3)
Quarter: 2014Q1

REPORT INFORMATION
  Report Type: Report from Study
  Country: PL (occurrence: PL)
  Receive Date: 20130723
  Receipt Date: 20140314
  Transmission Date: 20141002
  Serious: No
  Sender: FDA-Public Use
  Company Number: PL-US-EMD SERONO, INC.-7193782

PATIENT
  Age: 30 Year
  Sex: Female
  Weight: 66 kg

DRUGS (4)
  1. REBIF [Suspect]
     Indication: MULTIPLE SCLEROSIS
     Route: 058
     Dates: start: 20100427, end: 20100509
  2. REBIF [Suspect]
     Route: 058
     Dates: start: 20100511, end: 20100523
  3. REBIF [Suspect]
     Route: 058
     Dates: start: 20100525
  4. NEUROFEN [Concomitant]
     Indication: PROPHYLAXIS
     Route: 048
     Dates: start: 20080508

REACTIONS (1)
  - Optic neuritis [Recovered/Resolved]
